FAERS Safety Report 7753137-3 (Version None)
Quarter: 2011Q3

REPORT INFORMATION
  Report Type: 
  Country: None (occurrence: None)
  Receive Date: 20110913
  Receipt Date: 20110829
  Transmission Date: 20111222
  Serious: Yes (Hospitalization)
  Sender: FDA-Public Use
  Company Number: 2011AP001837

PATIENT
  Age: 12 Year
  Sex: Male

DRUGS (4)
  1. LEVETIRACETAM [Suspect]
     Indication: MYOCLONUS
     Dosage: 400;750;1400;1700 MG, QD
  2. VALPROIC ACID [Concomitant]
  3. OXCARBAZEPINE [Concomitant]
  4. ZONISAMIDE [Concomitant]

REACTIONS (6)
  - MYOCLONUS [None]
  - CONVULSION [None]
  - ELECTROENCEPHALOGRAM ABNORMAL [None]
  - FEELING JITTERY [None]
  - DRUG INEFFECTIVE [None]
  - CONDITION AGGRAVATED [None]
